FAERS Safety Report 26158247 (Version 1)
Quarter: 2025Q4

REPORT INFORMATION
  Report Type: Spontaneous
  Country: US (occurrence: US)
  Receive Date: 20251215
  Receipt Date: 20251215
  Transmission Date: 20260119
  Serious: Yes (Other)
  Sender: GLAXOSMITHKLINE
  Company Number: US-GLAXOSMITHKLINE INC-US2025158779

PATIENT
  Sex: Female

DRUGS (2)
  1. TRELEGY ELLIPTA [Suspect]
     Active Substance: FLUTICASONE FUROATE\UMECLIDINIUM BROMIDE\VILANTEROL TRIFENATATE
     Indication: Product used for unknown indication
     Dosage: UNK
  2. PROLIA [Concomitant]
     Active Substance: DENOSUMAB
     Indication: Arthritis
     Dosage: UNK

REACTIONS (7)
  - Neoplasm malignant [Unknown]
  - Tumour excision [Unknown]
  - Pneumonia [Unknown]
  - Diverticulum intestinal [Unknown]
  - Chronic obstructive pulmonary disease [Unknown]
  - Asthma exercise induced [Unknown]
  - Product dose omission issue [Unknown]
